FAERS Safety Report 23863255 (Version 4)
Quarter: 2024Q4

REPORT INFORMATION
  Report Type: Spontaneous
  Country: US (occurrence: US)
  Receive Date: 20240516
  Receipt Date: 20241001
  Transmission Date: 20250114
  Serious: Yes (Other)
  Sender: KARYOPHARM THERAPEUTICS
  Company Number: US-KARYOPHARM-2024KPT001041

PATIENT

DRUGS (13)
  1. XPOVIO [Suspect]
     Active Substance: SELINEXOR
     Indication: Plasma cell myeloma
     Dosage: 60 MG, WEEKLY
     Route: 048
     Dates: start: 20240429, end: 20240429
  2. XPOVIO [Suspect]
     Active Substance: SELINEXOR
     Dosage: 40 MG, WEEKLY
     Route: 048
     Dates: start: 202406
  3. ACYCLOVIR [Concomitant]
     Active Substance: ACYCLOVIR
  4. COREG CR [Concomitant]
     Active Substance: CARVEDILOL PHOSPHATE
  5. CLONIDINE [Concomitant]
     Active Substance: CLONIDINE
  6. DECADRON [Concomitant]
     Active Substance: DEXAMETHASONE
  7. LASIX [Concomitant]
     Active Substance: FUROSEMIDE
  8. OLANZAPINE [Concomitant]
     Active Substance: OLANZAPINE
  9. TRAMADOL [Concomitant]
     Active Substance: TRAMADOL
  10. PROCHLORPERAZINE [Concomitant]
     Active Substance: PROCHLORPERAZINE
  11. VELCADE [Concomitant]
     Active Substance: BORTEZOMIB
  12. ZOFRAN [Concomitant]
     Active Substance: ONDANSETRON HYDROCHLORIDE
  13. ZUBSOLV [Concomitant]
     Active Substance: BUPRENORPHINE HYDROCHLORIDE\NALOXONE HYDROCHLORIDE

REACTIONS (6)
  - Loss of consciousness [Recovering/Resolving]
  - Confusional state [Not Recovered/Not Resolved]
  - Hallucination, auditory [Recovering/Resolving]
  - Fatigue [Recovered/Resolved]
  - Nausea [Unknown]
  - Wrong technique in product usage process [Unknown]

NARRATIVE: CASE EVENT DATE: 20240101
